FAERS Safety Report 5207230-X (Version None)
Quarter: 2007Q1

REPORT INFORMATION
  Report Type: 
  Country: None (occurrence: None)
  Receive Date: 20070112
  Receipt Date: 20070104
  Transmission Date: 20070707
  Serious: Yes (Other)
  Sender: FDA-Public Use
  Company Number: 2006SE06286

PATIENT
  Age: 3407 Day
  Sex: Female
  Weight: 33.2 kg

DRUGS (3)
  1. LOSEC [Suspect]
     Indication: HELICOBACTER INFECTION
     Route: 048
     Dates: start: 20061005, end: 20061012
  2. IMACILLIN [Concomitant]
     Indication: HELICOBACTER INFECTION
     Route: 048
     Dates: start: 20061005, end: 20061012
  3. METRONIDAZOLE [Concomitant]
     Indication: HELICOBACTER INFECTION
     Route: 048
     Dates: start: 20061005, end: 20061012

REACTIONS (2)
  - CHROMATOPSIA [None]
  - VISUAL DISTURBANCE [None]
